FAERS Safety Report 21815152 (Version 2)
Quarter: 2023Q1

REPORT INFORMATION
  Report Type: Spontaneous
  Country: DE (occurrence: DE)
  Receive Date: 20230104
  Receipt Date: 20230210
  Transmission Date: 20230417
  Serious: Yes (Hospitalization)
  Sender: FDA-Public Use
  Company Number: DE-DCGMA-22198175

PATIENT
  Age: 80 Year
  Sex: Male
  Weight: 75 kg

DRUGS (5)
  1. LEVOFLOXACIN [Suspect]
     Active Substance: LEVOFLOXACIN
     Indication: Epididymitis
     Dosage: 500 MILLIGRAM, ONCE A DAY
     Route: 048
  2. ALENDRONIC ACID [Concomitant]
     Active Substance: ALENDRONIC ACID
     Indication: Osteoporosis
     Dosage: 70 MILLIGRAM, EVERY WEEK
     Route: 048
     Dates: start: 2017
  3. PREDNISOLONE [Concomitant]
     Active Substance: PREDNISOLONE
     Indication: Polymyalgia rheumatica
     Dosage: 2 MILLIGRAM, ONCE A DAY
     Route: 048
     Dates: start: 2017
  4. Spasmex [Concomitant]
     Indication: Hypertonic bladder
     Dosage: 15 MILLIGRAM, ONCE A DAY
     Route: 048
  5. PIPERACILLIN SODIUM\TAZOBACTAM SODIUM [Concomitant]
     Active Substance: PIPERACILLIN SODIUM\TAZOBACTAM SODIUM
     Indication: Epididymitis
     Dosage: UNK, ONCE A DAY
     Route: 065

REACTIONS (2)
  - Tendon disorder [Not Recovered/Not Resolved]
  - Pain in extremity [Not Recovered/Not Resolved]

NARRATIVE: CASE EVENT DATE: 20220220
